FAERS Safety Report 19858741 (Version 1)
Quarter: 2021Q3

REPORT INFORMATION
  Report Type: Spontaneous
  Country: US (occurrence: US)
  Receive Date: 20210921
  Receipt Date: 20210921
  Transmission Date: 20211014
  Serious: Yes (Other)
  Sender: FDA-Public Use
  Company Number: US-AUROBINDO-AUR-APL-2021-039364

PATIENT
  Age: 54 Year
  Sex: Female

DRUGS (8)
  1. DEXAMETHASONE. [Suspect]
     Active Substance: DEXAMETHASONE
     Dosage: 16 MILLIGRAM, DAILY (16MG/DAY)
     Route: 065
  2. REVLIMID [Concomitant]
     Active Substance: LENALIDOMIDE
     Indication: T-CELL LYMPHOMA
     Dosage: UNK
     Route: 065
  3. DEXAMETHASONE. [Suspect]
     Active Substance: DEXAMETHASONE
     Indication: FATIGUE
     Dosage: 40 MILLIGRAM, DAILY (40 MG/DAY)
     Route: 065
  4. BRENTUXIMAB VEDOTIN [Concomitant]
     Active Substance: BRENTUXIMAB VEDOTIN
     Indication: T-CELL LYMPHOMA
     Dosage: UNK
     Route: 065
  5. DUVELISIB [Concomitant]
     Active Substance: DUVELISIB
     Indication: T-CELL LYMPHOMA
     Dosage: UNK
     Route: 065
  6. COPANLISIB. [Suspect]
     Active Substance: COPANLISIB
     Indication: T-CELL LYMPHOMA
     Dosage: 60 MILLIGRAM
     Route: 042
  7. PRALATREXATE [Concomitant]
     Active Substance: PRALATREXATE
     Indication: T-CELL LYMPHOMA
     Dosage: UNK
     Route: 065
  8. GEMCITABINE. [Concomitant]
     Active Substance: GEMCITABINE
     Indication: T-CELL LYMPHOMA
     Dosage: UNK
     Route: 065

REACTIONS (1)
  - Hyperglycaemia [Recovered/Resolved]
